FAERS Safety Report 12391758 (Version 1)
Quarter: 2016Q2

REPORT INFORMATION
  Report Type: Spontaneous
  Country: CZ (occurrence: CZ)
  Receive Date: 20160522
  Receipt Date: 20160522
  Transmission Date: 20160815
  Serious: Yes (Other)
  Sender: FDA-Public Use
  Company Number: CZ-MYLANLABS-2016M1020812

PATIENT

DRUGS (2)
  1. METFORMIN [Suspect]
     Active Substance: METFORMIN HYDROCHLORIDE
     Indication: TYPE 2 DIABETES MELLITUS
     Dosage: 1700 MG, QD
  2. GLIMEPIRIDE. [Suspect]
     Active Substance: GLIMEPIRIDE
     Indication: TYPE 2 DIABETES MELLITUS
     Dosage: 4 MG 1 TABLET IN THE MORNING
     Route: 048
     Dates: start: 2010

REACTIONS (4)
  - Hypoglycaemia [Recovered/Resolved]
  - Rash [Recovered/Resolved]
  - Autoimmune thyroiditis [Recovered/Resolved]
  - Pruritus [Recovered/Resolved]
